FAERS Safety Report 19983308 (Version 4)
Quarter: 2025Q3

REPORT INFORMATION
  Report Type: Spontaneous
  Country: CA (occurrence: CA)
  Receive Date: 20211021
  Receipt Date: 20250924
  Transmission Date: 20251021
  Serious: Yes (Other)
  Sender: TAKEDA
  Company Number: CA-TAKEDA-2021TUS063696

PATIENT
  Age: 13 Year
  Sex: Male

DRUGS (8)
  1. GAMUNEX [Suspect]
     Active Substance: HUMAN IMMUNOGLOBULIN G
     Indication: Multisystem inflammatory syndrome in children
     Dates: start: 20210512, end: 20210512
  2. GAMUNEX [Suspect]
     Active Substance: HUMAN IMMUNOGLOBULIN G
     Indication: Cystitis interstitial
  3. MORPHINE [Suspect]
     Active Substance: MORPHINE
     Indication: Cystitis interstitial
  4. MORPHINE [Suspect]
     Active Substance: MORPHINE
     Indication: Pain management
  5. GABAPENTIN [Suspect]
     Active Substance: GABAPENTIN
     Indication: Cystitis interstitial
  6. GABAPENTIN [Suspect]
     Active Substance: GABAPENTIN
     Indication: Pain management
  7. SIROLIMUS [Suspect]
     Active Substance: SIROLIMUS
     Indication: Cystitis interstitial
  8. SIROLIMUS [Suspect]
     Active Substance: SIROLIMUS
     Indication: Pain management

REACTIONS (9)
  - Anaphylactic reaction [Recovered/Resolved]
  - Chills [Recovered/Resolved]
  - Dyspnoea [Recovered/Resolved]
  - Tachycardia [Recovered/Resolved]
  - Livedo reticularis [Recovered/Resolved]
  - Oxygen saturation decreased [Recovered/Resolved]
  - Drug ineffective [Unknown]
  - Drug ineffective for unapproved indication [Unknown]
  - Off label use [Unknown]

NARRATIVE: CASE EVENT DATE: 20210512
